FAERS Safety Report 9669451 (Version 1)
Quarter: 2013Q4

REPORT INFORMATION
  Report Type: Spontaneous
  Country: GB (occurrence: GB)
  Receive Date: 20131105
  Receipt Date: 20131105
  Transmission Date: 20140711
  Serious: Yes (Other)
  Sender: FDA-Public Use
  Company Number: GB-PFIZER INC-2013310049

PATIENT
  Age: 80 Year
  Sex: Male
  Weight: 71 kg

DRUGS (10)
  1. EPLERENONE [Suspect]
     Indication: CARDIAC FAILURE
  2. PROCORALAN [Suspect]
     Indication: CARDIAC FAILURE
     Dosage: 5 MG, 2X/DAY
     Route: 048
     Dates: end: 20121003
  3. PROCORALAN [Suspect]
     Indication: HEART RATE
     Dosage: 2.5 MG, 2X/DAY
     Route: 048
     Dates: start: 20121004, end: 20121101
  4. NICORANDIL [Concomitant]
     Indication: ANGINA PECTORIS
     Dosage: 10 MG, 2X/DAY
     Route: 048
  5. PERINDOPRIL [Concomitant]
     Indication: LEFT VENTRICULAR DYSFUNCTION
     Dosage: 2 MG, 1X/DAY
     Route: 048
  6. SIMVASTATIN [Concomitant]
     Indication: BLOOD CHOLESTEROL INCREASED
     Dosage: 40 MG, 1X/DAY
     Route: 048
  7. ACETYLSALICYLIC ACID [Concomitant]
     Indication: MYOCARDIAL ISCHAEMIA
     Dosage: 75 MG, 1X/DAY
     Route: 048
  8. VENTOLIN [Concomitant]
     Indication: CHRONIC OBSTRUCTIVE PULMONARY DISEASE
     Dosage: UNK
     Route: 055
  9. SERETIDE [Concomitant]
     Indication: CHRONIC OBSTRUCTIVE PULMONARY DISEASE
     Dosage: UNK
     Route: 055
  10. SPIRIVA [Concomitant]
     Indication: CHRONIC OBSTRUCTIVE PULMONARY DISEASE
     Dosage: UNK
     Route: 055

REACTIONS (3)
  - Extrasystoles [Recovering/Resolving]
  - Dyspnoea [Recovering/Resolving]
  - Heart rate irregular [Recovering/Resolving]
